FAERS Safety Report 7337849-1 (Version None)
Quarter: 2011Q1

REPORT INFORMATION
  Report Type: 
  Country: None (occurrence: None)
  Receive Date: 20110224
  Receipt Date: 20110211
  Transmission Date: 20110831
  Serious: Yes (Hospitalization, Disabling, Other)
  Sender: FDA-Public Use
  Company Number: 1000016637

PATIENT
  Age: 84 Year
  Sex: Female
  Weight: 55 kg

DRUGS (4)
  1. FALITHROM (PENPROCOUMON) (TABLETS) [Suspect]
     Indication: CARDIAC FIBRILLATION
     Dosage: 3 MG (3 MG,1 IN 1 D), ORAL
     Route: 048
     Dates: start: 20100810, end: 20100810
  2. MOLSIDOMINE (MOLSIDOMINE) (TABLETS) [Suspect]
     Indication: ANGINA PECTORIS
     Dosage: 8 MG (8 MG,1 IN 1 D), ORAL
     Route: 048
     Dates: start: 20000101
  3. BELOC ZOK MITE (METOPROLOL SUCCINATE) (TABLETS) [Suspect]
     Indication: HYPERTENSION
     Dosage: 95 MG (47.5 MG,2 IN 1 D), ORAL
     Route: 048
     Dates: start: 20000101, end: 20100905
  4. CITALOPRAM HYDROBROMIDE [Suspect]
     Indication: DEPRESSION
     Dosage: 20 MG (20 MG,1 IN 1 D), ORAL
     Route: 048
     Dates: start: 20100301, end: 20100816

REACTIONS (13)
  - HELICOBACTER TEST POSITIVE [None]
  - HEPATITIS TOXIC [None]
  - REFLUX OESOPHAGITIS [None]
  - ATRIAL FIBRILLATION [None]
  - DEHYDRATION [None]
  - ARRHYTHMIA [None]
  - RESTLESSNESS [None]
  - HEPATIC CIRRHOSIS [None]
  - ACUTE HEPATIC FAILURE [None]
  - DIARRHOEA [None]
  - SUICIDAL IDEATION [None]
  - PANCREATITIS ACUTE [None]
  - DEPRESSION [None]
